FAERS Safety Report 20770118 (Version 1)
Quarter: 2022Q2

REPORT INFORMATION
  Report Type: Spontaneous
  Country: US (occurrence: US)
  Receive Date: 20220429
  Receipt Date: 20220429
  Transmission Date: 20220721
  Serious: No
  Sender: FDA-Public Use
  Company Number: US-ABBVIE-21K-163-4103802-00

PATIENT
  Sex: Male

DRUGS (1)
  1. ANDROGEL [Suspect]
     Active Substance: TESTOSTERONE
     Indication: Product used for unknown indication
     Dosage: UNKNOWN
     Route: 061

REACTIONS (3)
  - Therapeutic product effect incomplete [Unknown]
  - Blood testosterone decreased [Unknown]
  - Blood testosterone abnormal [Unknown]
